FAERS Safety Report 7688958-9 (Version None)
Quarter: 2011Q3

REPORT INFORMATION
  Report Type: 
  Country: None (occurrence: None)
  Receive Date: 20110817
  Receipt Date: 20110811
  Transmission Date: 20111222
  Serious: Yes (Life-Threatening, Disabling, Other)
  Sender: FDA-Public Use
  Company Number: PHHY2011US08668

PATIENT
  Age: 36 Year
  Sex: Female
  Weight: 55 kg

DRUGS (11)
  1. SOMA [Concomitant]
     Indication: MUSCLE SPASTICITY
     Dosage: 350 MG, QD
     Route: 048
     Dates: start: 20100526
  2. ASPIRIN [Concomitant]
     Dosage: 81 MG, QD
     Route: 048
     Dates: start: 20091007
  3. MS CONTIN [Concomitant]
     Indication: PAIN IN EXTREMITY
     Dosage: 90 MG, QD
     Route: 048
     Dates: start: 20100201
  4. TRAZODONE HCL [Concomitant]
     Indication: INSOMNIA
     Dosage: 100 MG, QD
     Dates: start: 20100724
  5. PERCOCET [Concomitant]
     Indication: PAIN
     Dosage: 325 MG, Q6H
     Route: 048
     Dates: start: 20100526
  6. IMITREX ^CERENEX^ [Concomitant]
     Indication: MIGRAINE
     Dosage: 100 MG, PRN
     Dates: start: 20100202
  7. CLONAZEPAM [Concomitant]
     Indication: MUSCLE SPASTICITY
     Dosage: 2 MG, QD
     Route: 048
     Dates: start: 20080410
  8. MECLIZINE [Concomitant]
     Indication: VERTIGO
     Dosage: 25 MG, PRN
     Dates: start: 20091117
  9. AMINOPYRIDINE [Concomitant]
     Dosage: 20 MG, DAILY
     Route: 048
     Dates: start: 20110501
  10. GILENYA [Suspect]
     Indication: MULTIPLE SCLEROSIS
     Dosage: 0.5 MG, QD
     Route: 048
     Dates: start: 20110117, end: 20110201
  11. BACLOFEN [Concomitant]
     Indication: MUSCLE SPASTICITY
     Dosage: 40 MG, DAILY
     Route: 048
     Dates: start: 20080810

REACTIONS (13)
  - HEART RATE INCREASED [None]
  - TREMOR [None]
  - HEART RATE DECREASED [None]
  - DIZZINESS [None]
  - NYSTAGMUS [None]
  - VISION BLURRED [None]
  - NAUSEA [None]
  - DECREASED APPETITE [None]
  - MUSCULAR WEAKNESS [None]
  - EYE PAIN [None]
  - HYPOTENSION [None]
  - EATING DISORDER [None]
  - NEPHROLITHIASIS [None]
